FAERS Safety Report 5856211-1 (Version None)
Quarter: 2008Q3

REPORT INFORMATION
  Report Type: 
  Country: None (occurrence: None)
  Receive Date: 20080825
  Receipt Date: 20080820
  Transmission Date: 20090109
  Serious: Yes (Death, Hospitalization)
  Sender: FDA-Public Use
  Company Number: A0744015A

PATIENT
  Sex: Male
  Weight: 84.1 kg

DRUGS (1)
  1. AVANDIA [Suspect]
     Route: 048
     Dates: end: 20040624

REACTIONS (9)
  - ACUTE CORONARY SYNDROME [None]
  - BLOOD GLUCOSE DECREASED [None]
  - CONVULSION [None]
  - DEATH [None]
  - FLUID RETENTION [None]
  - HIP FRACTURE [None]
  - LOSS OF CONSCIOUSNESS [None]
  - RENAL FAILURE [None]
  - WEIGHT INCREASED [None]
